FAERS Safety Report 10331770 (Version 1)
Quarter: 2014Q3

REPORT INFORMATION
  Report Type: Spontaneous
  Country: US (occurrence: None)
  Receive Date: 20140721
  Receipt Date: 20140721
  Transmission Date: 20150326
  Serious: Yes (Other)
  Sender: FDA-Public Use
  Company Number: None

PATIENT
  Age: 67 Year
  Sex: Male

DRUGS (1)
  1. TAFINLAR [Suspect]
     Active Substance: DABRAFENIB MESYLATE
     Indication: PLASMA CELL MYELOMA
     Route: 048
     Dates: start: 20130920

REACTIONS (2)
  - Skin lesion [None]
  - Skin cancer [None]

NARRATIVE: CASE EVENT DATE: 20140601
